FAERS Safety Report 14488292 (Version 2)
Quarter: 2018Q1

REPORT INFORMATION
  Report Type: Spontaneous
  Country: US (occurrence: US)
  Receive Date: 20180205
  Receipt Date: 20180207
  Transmission Date: 20180509
  Serious: Yes (Hospitalization)
  Sender: FDA-Public Use
  Company Number: US-FRESENIUS MEDICAL CARE RENAL THERAPIES GROUP-FMC-1802-000204

PATIENT
  Sex: Male

DRUGS (15)
  1. AMLODIPINE [Concomitant]
     Active Substance: AMLODIPINE BESYLATE
     Route: 048
     Dates: start: 20171213
  2. FLONASE [Concomitant]
     Active Substance: FLUTICASONE PROPIONATE
     Dosage: 2 SPRAYS INTO EACH NARE DAILY.
     Route: 045
     Dates: start: 20160318
  3. VIAGRA [Concomitant]
     Active Substance: SILDENAFIL CITRATE
     Dosage: AS NEEDED
     Route: 048
  4. TIOTROPIUM [Concomitant]
     Active Substance: TIOTROPIUM
     Route: 045
     Dates: start: 20150713
  5. ONDANSETRON [Concomitant]
     Active Substance: ONDANSETRON
     Dosage: TAKE 4 MG EVERY 8 HOURS AS NEEDED FOR NAUSEA
     Route: 048
  6. DELFLEX [Suspect]
     Active Substance: CALCIUM CHLORIDE\DEXTROSE\MAGNESIUM CHLORIDE\SODIUM CHLORIDE\SODIUM LACTATE
     Indication: END STAGE RENAL DISEASE
     Route: 033
  7. COLACE [Concomitant]
     Active Substance: DOCUSATE SODIUM
     Dosage: TAKE 200MG BY MOTH AS NEEDED
     Route: 048
     Dates: start: 20150721
  8. OMEGA-3 ACIDS [Concomitant]
     Active Substance: OMEGA-3 FATTY ACIDS
     Route: 048
  9. ALBUTEROL-IPRATROPIUM [Concomitant]
     Active Substance: ALBUTEROL\IPRATROPIUM
     Dosage: TAKE 3 MLS BY NEBULIZATION 3 TIMES DAILY AS NEEDED
  10. LEVOTHYROXINE. [Concomitant]
     Active Substance: LEVOTHYROXINE
     Route: 048
  11. OMEPRAZOLE. [Concomitant]
     Active Substance: OMEPRAZOLE
     Route: 048
     Dates: start: 20150304
  12. OXYCODONE-ACETAMINAOPHEN [Concomitant]
     Dosage: TAKE ONE 7.5-325 MG TABLET EVERY 6 HOURS AS NEEDED FOR PAIN
     Route: 048
  13. CHOLECALCIFEROL [Concomitant]
     Active Substance: CHOLECALCIFEROL
     Dosage: TAKE 1 CAPSULE BY MOUTH DAILY
     Route: 048
  14. ALBUTEROL. [Concomitant]
     Active Substance: ALBUTEROL
     Dosage: INHALE 2 PUFFS INTO THE LUNGS EVERY 6 HOURS AS NEEDED FOR SHORTNESS OF BREATH.
  15. ATORVASTATIN [Concomitant]
     Active Substance: ATORVASTATIN
     Dosage: TAKE 20 MG BY MOUTH NIGHTLY.  TAKE 1/2 TABLET MWF.
     Route: 048

REACTIONS (2)
  - Small intestinal obstruction [Unknown]
  - Incarcerated umbilical hernia [Unknown]
